FAERS Safety Report 13508898 (Version 3)
Quarter: 2017Q2

REPORT INFORMATION
  Report Type: Spontaneous
  Country: AT (occurrence: AT)
  Receive Date: 20170503
  Receipt Date: 20170623
  Transmission Date: 20170830
  Serious: Yes (Other)
  Sender: FDA-Public Use
  Company Number: AT-PFIZER INC-2017192003

PATIENT
  Age: 62 Year
  Sex: Male

DRUGS (8)
  1. AMIODARONE HCL [Suspect]
     Active Substance: AMIODARONE HYDROCHLORIDE
     Dosage: UNK
     Route: 065
     Dates: start: 2006
  2. OLMESARTAN [Concomitant]
     Active Substance: OLMESARTAN
     Dosage: UNK
  3. ASA [Concomitant]
     Active Substance: ASPIRIN
     Dosage: UNK
  4. PROPRANOLOL [Concomitant]
     Active Substance: PROPRANOLOL HYDROCHLORIDE
     Dosage: UNK
  5. TAMSULOSIN HCL [Concomitant]
     Active Substance: TAMSULOSIN
     Dosage: UNK
  6. SIMVASTATIN. [Concomitant]
     Active Substance: SIMVASTATIN
     Dosage: UNK
  7. AMLODIPINE [Concomitant]
     Active Substance: AMLODIPINE BESYLATE
     Dosage: UNK
  8. ENOXAPARIN [Concomitant]
     Active Substance: ENOXAPARIN
     Dosage: UNK

REACTIONS (1)
  - Thyroiditis [Recovered/Resolved]

NARRATIVE: CASE EVENT DATE: 200708
